FAERS Safety Report 21300221 (Version 2)
Quarter: 2022Q3

REPORT INFORMATION
  Report Type: Report from Study
  Country: DE (occurrence: DE)
  Receive Date: 20220906
  Receipt Date: 20220919
  Transmission Date: 20221027
  Serious: Yes (Other)
  Sender: FDA-Public Use
  Company Number: DE-BRISTOL-MYERS SQUIBB COMPANY-2022-097421

PATIENT
  Age: 63 Year
  Sex: Male
  Weight: 65 kg

DRUGS (11)
  1. DAKLINZA [Suspect]
     Active Substance: DACLATASVIR
     Indication: Chronic hepatitis C
     Dosage: 6 PACKAGES OF DACLATASVIR (1 PACKAGE CONTAINING 28 FILM-COATED TABLETS)
     Route: 048
     Dates: start: 20140923, end: 20150303
  2. SOVALDI [Concomitant]
     Active Substance: SOFOSBUVIR
     Indication: Chronic hepatitis C
     Dosage: 6 BOTTLES OF SOFOSBUVIR (1 BOTTLE CONTAINING 28 FILM-COATED TABLETS)
     Route: 048
     Dates: start: 20140923, end: 20150303
  3. RAMIPRIL [Concomitant]
     Active Substance: RAMIPRIL
     Indication: Product used for unknown indication
     Route: 065
  4. ASPIRIN [Concomitant]
     Active Substance: ASPIRIN
     Indication: Product used for unknown indication
     Dosage: 100
     Route: 065
     Dates: end: 20181125
  5. ASPIRIN [Concomitant]
     Active Substance: ASPIRIN
     Dosage: 50
     Route: 065
     Dates: start: 20181126
  6. METFORMIN [Concomitant]
     Active Substance: METFORMIN HYDROCHLORIDE
     Indication: Product used for unknown indication
     Route: 065
  7. METOPROLOL [Concomitant]
     Active Substance: METOPROLOL
     Indication: Product used for unknown indication
     Route: 065
  8. PANTOPRAZOLE [Concomitant]
     Active Substance: PANTOPRAZOLE
     Indication: Product used for unknown indication
     Route: 065
  9. SIMVASTATIN [Concomitant]
     Active Substance: SIMVASTATIN
     Indication: Product used for unknown indication
     Route: 065
  10. FERROUS GLUCONATE [Concomitant]
     Active Substance: FERROUS GLUCONATE
     Indication: Product used for unknown indication
     Route: 065
     Dates: end: 20190613
  11. FERROUS GLUCONATE [Concomitant]
     Active Substance: FERROUS GLUCONATE
     Route: 065
     Dates: start: 20190614

REACTIONS (1)
  - Chronic kidney disease [Unknown]

NARRATIVE: CASE EVENT DATE: 20210916
